FAERS Safety Report 15612487 (Version 1)
Quarter: 2018Q4

REPORT INFORMATION
  Report Type: Spontaneous
  Country: AT (occurrence: AT)
  Receive Date: 20181113
  Receipt Date: 20181113
  Transmission Date: 20190205
  Serious: Yes (Hospitalization)
  Sender: FDA-Public Use
  Company Number: PHHY2018AT151463

PATIENT
  Age: 79 Year
  Sex: Female

DRUGS (1)
  1. OSPEN [Suspect]
     Active Substance: PENICILLIN V
     Indication: OTITIS MEDIA ACUTE
     Dosage: UNK
     Route: 048

REACTIONS (2)
  - Angioedema [Recovered/Resolved]
  - Respiratory distress [Recovered/Resolved]

NARRATIVE: CASE EVENT DATE: 20180829
